FAERS Safety Report 9313429 (Version 3)
Quarter: 2013Q3

REPORT INFORMATION
  Report Type: Spontaneous
  Country: IT (occurrence: IT)
  Receive Date: 20130528
  Receipt Date: 20130710
  Transmission Date: 20140515
  Serious: Yes (Hospitalization)
  Sender: FDA-Public Use
  Company Number: IT-ASTRAZENECA-2013SE35166

PATIENT
  Age: 28706 Day
  Sex: Male

DRUGS (2)
  1. ZESTORETIC [Suspect]
     Dosage: 20 MG+12.5 MG TABLETS, ONE DOSAGE FORM DAILY
     Route: 048
     Dates: start: 20120318, end: 20130317
  2. METFORAL [Suspect]
     Route: 048
     Dates: start: 20120318, end: 20130317

REACTIONS (6)
  - Renal failure acute [Not Recovered/Not Resolved]
  - Diarrhoea [Not Recovered/Not Resolved]
  - Blood creatine phosphokinase increased [Not Recovered/Not Resolved]
  - Nausea [Not Recovered/Not Resolved]
  - Vomiting [Not Recovered/Not Resolved]
  - Abdominal pain [Not Recovered/Not Resolved]
